FAERS Safety Report 8470516-X (Version None)
Quarter: 2012Q2

REPORT INFORMATION
  Report Type: 
  Country: None (occurrence: None)
  Receive Date: 20120627
  Receipt Date: 20111123
  Transmission Date: 20120825
  Serious: No
  Sender: FDA-Public Use
  Company Number: US-MYLANLABS-2011S1024184

PATIENT
  Age: 83 Year
  Sex: Male

DRUGS (2)
  1. PERFOROMIST [Suspect]
     Route: 055
     Dates: start: 20111122, end: 20111122
  2. PERFOROMIST [Suspect]
     Indication: ASTHMA
     Route: 055
     Dates: start: 20111101, end: 20111101

REACTIONS (1)
  - DYSURIA [None]
